FAERS Safety Report 7658792-4 (Version None)
Quarter: 2011Q3

REPORT INFORMATION
  Report Type: 
  Country: None (occurrence: None)
  Receive Date: 20110805
  Receipt Date: 20110805
  Transmission Date: 20111222
  Serious: Yes (Other)
  Sender: FDA-Public Use
  Company Number: None

PATIENT
  Sex: Female
  Weight: 97.522 kg

DRUGS (1)
  1. NUCYNTA [Suspect]
     Indication: PAIN
     Dosage: 50 MG OR 100 MG
     Route: 048
     Dates: start: 20110801, end: 20110801

REACTIONS (8)
  - PRURITUS GENERALISED [None]
  - WHEEZING [None]
  - LETHARGY [None]
  - OEDEMA MOUTH [None]
  - DYSPNOEA [None]
  - HYPERSENSITIVITY [None]
  - COUGH [None]
  - SPEECH DISORDER [None]
